FAERS Safety Report 8915077 (Version 1)
Quarter: 2012Q4

REPORT INFORMATION
  Report Type: Report from Study
  Country: DE (occurrence: DE)
  Receive Date: 20121119
  Receipt Date: 20121119
  Transmission Date: 20130627
  Serious: Yes (Hospitalization)
  Sender: FDA-Public Use
  Company Number: DE-ROCHE-1155983

PATIENT
  Sex: Female

DRUGS (7)
  1. RITUXIMAB [Suspect]
     Indication: RHEUMATOID ARTHRITIS
     Route: 065
     Dates: start: 20100420
  2. LEFLUNOMID [Concomitant]
     Indication: RHEUMATOID ARTHRITIS
     Route: 065
     Dates: start: 201108, end: 201111
  3. HYDROXYCHLOROQUINE [Concomitant]
     Indication: RHEUMATOID ARTHRITIS
     Route: 065
     Dates: start: 201007
  4. IBUPROFEN [Concomitant]
     Route: 065
  5. AMLODIPIN [Concomitant]
     Route: 065
  6. PROVAS (GERMANY) [Concomitant]
     Route: 065
  7. MOXONIDIN [Concomitant]

REACTIONS (1)
  - Breast cancer [Not Recovered/Not Resolved]
